FAERS Safety Report 18571067 (Version 1)
Quarter: 2020Q4

REPORT INFORMATION
  Report Type: Spontaneous
  Country: US (occurrence: US)
  Receive Date: 20201202
  Receipt Date: 20201202
  Transmission Date: 20210114
  Serious: No
  Sender: FDA-Public Use
  Company Number: US-NOVEN PHARMACEUTICALS, INC.-US2020000101

PATIENT

DRUGS (2)
  1. MINIVELLE [Suspect]
     Active Substance: ESTRADIOL
     Dosage: USED 0.1 MG AND 0.05 MG PATCH TOGETHER, UNKNOWN
     Route: 062
  2. MINIVELLE [Suspect]
     Active Substance: ESTRADIOL
     Indication: PRODUCT USED FOR UNKNOWN INDICATION
     Dosage: ONE PATCH, UNKNOWN
     Route: 062

REACTIONS (3)
  - Off label use [Recovered/Resolved]
  - Therapeutic product ineffective [Recovered/Resolved]
  - No adverse event [Unknown]
